FAERS Safety Report 8400822-6 (Version None)
Quarter: 2012Q2

REPORT INFORMATION
  Report Type: 
  Country: None (occurrence: None)
  Receive Date: 20120531
  Receipt Date: 20120529
  Transmission Date: 20120825
  Serious: Yes (Life-Threatening, Hospitalization)
  Sender: FDA-Public Use
  Company Number: MX-ROCHE-1054512

PATIENT
  Age: 39 Year
  Weight: 63.5 kg

DRUGS (3)
  1. PREDNISONE TAB [Concomitant]
     Dates: start: 20120227
  2. VEMURAFENIB [Suspect]
     Route: 048
     Dates: start: 20120403
  3. VEMURAFENIB [Suspect]
     Indication: METASTATIC MALIGNANT MELANOMA
     Route: 048
     Dates: start: 20120315, end: 20120326

REACTIONS (4)
  - ERYTHEMA NODOSUM [None]
  - PAIN OF SKIN [None]
  - ARTHRALGIA [None]
  - MYALGIA [None]
